FAERS Safety Report 19764528 (Version 1)
Quarter: 2021Q3

REPORT INFORMATION
  Report Type: Spontaneous
  Country: US (occurrence: US)
  Receive Date: 20210831
  Receipt Date: 20210831
  Transmission Date: 20211014
  Serious: Yes (Hospitalization, Other)
  Sender: FDA-Public Use
  Company Number: US-SCIEGENPHARMA-2021SCILIT00702

PATIENT
  Age: 48 Year
  Sex: Female

DRUGS (7)
  1. BUPROPION HYDROCHLORIDE. [Suspect]
     Active Substance: BUPROPION HYDROCHLORIDE
     Indication: DEPRESSION
     Route: 065
  2. HYDROXYCHLOROQUIN [Interacting]
     Active Substance: HYDROXYCHLOROQUINE SULFATE
     Indication: RASH
     Route: 065
  3. QUINACRINE [MEPACRINE] [Interacting]
     Active Substance: QUINACRINE
     Indication: RASH
     Route: 065
  4. PHENTERMINE. [Concomitant]
     Active Substance: PHENTERMINE
     Indication: PRODUCT USED FOR UNKNOWN INDICATION
     Route: 065
  5. CHLOROQUINE. [Interacting]
     Active Substance: CHLOROQUINE
     Indication: LUPUS-LIKE SYNDROME
     Route: 065
  6. PREDNISONE. [Interacting]
     Active Substance: PREDNISONE
     Indication: RASH
     Route: 065
  7. METHOTREXATE. [Interacting]
     Active Substance: METHOTREXATE
     Indication: LUPUS-LIKE SYNDROME
     Route: 065

REACTIONS (1)
  - Lupus-like syndrome [Recovered/Resolved]
